FAERS Safety Report 8065499-0 (Version None)
Quarter: 2012Q1

REPORT INFORMATION
  Report Type: 
  Country: None (occurrence: None)
  Receive Date: 20120124
  Receipt Date: 20120116
  Transmission Date: 20120608
  Serious: Yes (Hospitalization)
  Sender: FDA-Public Use
  Company Number: FR-JNJFOC-20120106389

PATIENT
  Sex: Male

DRUGS (10)
  1. ZYPREXA [Suspect]
     Indication: PRODUCT USED FOR UNKNOWN INDICATION
     Route: 048
     Dates: start: 20110802, end: 20111012
  2. PRAZEPAM [Concomitant]
     Indication: ANXIETY
     Route: 048
     Dates: start: 20110902
  3. LEPTICUR [Concomitant]
     Route: 048
     Dates: start: 20110910, end: 20111025
  4. NORVIR [Concomitant]
     Route: 048
     Dates: start: 20110802
  5. ABACAVIR SULFATE AND LAMIVUDINE [Concomitant]
     Route: 048
     Dates: start: 20110802
  6. PREZISTA [Concomitant]
     Route: 048
     Dates: start: 20110802
  7. LAMICTAL [Concomitant]
     Route: 048
     Dates: start: 20111002, end: 20111017
  8. IMOVANE [Concomitant]
     Indication: INSOMNIA
     Route: 048
  9. HALDOL [Suspect]
     Indication: PRODUCT USED FOR UNKNOWN INDICATION
     Route: 048
     Dates: start: 20111003, end: 20111016
  10. EFFEXOR [Concomitant]
     Route: 048
     Dates: start: 20110802, end: 20111017

REACTIONS (3)
  - HYPOTHERMIA [None]
  - IMPAIRED SELF-CARE [None]
  - DISORIENTATION [None]
